FAERS Safety Report 4918540-5 (Version None)
Quarter: 2006Q2

REPORT INFORMATION
  Report Type: 
  Country: None (occurrence: None)
  Receive Date: 20060221
  Receipt Date: 20060221
  Transmission Date: 20061013
  Serious: Yes (Other)
  Sender: FDA-Public Use
  Company Number: None

PATIENT
  Age: 54 Year
  Sex: Male
  Weight: 81.6475 kg

DRUGS (1)
  1. CLEAR CARE [Suspect]
     Indication: CORRECTIVE LENS USER
     Dosage: SMALL AMOUNT TO CLEAN LENSES USED TWICE
     Dates: start: 20060217, end: 20060218

REACTIONS (5)
  - APPLICATION SITE PAIN [None]
  - CORRECTIVE LENS USER [None]
  - EYE IRRITATION [None]
  - EYE PAIN [None]
  - HEADACHE [None]
